FAERS Safety Report 4638576-1 (Version None)
Quarter: 2005Q2

REPORT INFORMATION
  Report Type: 
  Country: None (occurrence: None)
  Receive Date: 20050325
  Receipt Date: 20050105
  Transmission Date: 20051028
  Serious: No
  Sender: FDA-Public Use
  Company Number: USA041184078

PATIENT
  Age: 81 Year
  Sex: Female
  Weight: 45 kg

DRUGS (6)
  1. FORTEO [Suspect]
     Indication: OSTEOPOROSIS
     Dosage: 20 UG DAY
     Dates: start: 20041022, end: 20041119
  2. LORCET-HD [Concomitant]
  3. FLINTSTONES [Concomitant]
  4. CALCIUM GLUCONATE [Concomitant]
  5. ASPIRIN [Concomitant]
  6. VITAMIN D [Concomitant]

REACTIONS (6)
  - ANOREXIA [None]
  - BLOOD POTASSIUM INCREASED [None]
  - NAUSEA [None]
  - THROMBOSIS [None]
  - VITAMIN D INCREASED [None]
  - WEIGHT DECREASED [None]
